FAERS Safety Report 7323507-6 (Version None)
Quarter: 2011Q1

REPORT INFORMATION
  Report Type: 
  Country: None (occurrence: None)
  Receive Date: 20110301
  Receipt Date: 20110217
  Transmission Date: 20110831
  Serious: Yes (Other)
  Sender: FDA-Public Use
  Company Number: JP-ROCHE-748041

PATIENT
  Sex: Male
  Weight: 60 kg

DRUGS (14)
  1. ELPLAT [Suspect]
     Route: 042
     Dates: start: 20100827, end: 20101029
  2. OXINORM [Concomitant]
     Route: 048
     Dates: start: 20101122
  3. AVASTIN [Suspect]
     Route: 041
     Dates: start: 20101125, end: 20101125
  4. 5-FU [Suspect]
     Route: 042
     Dates: start: 20101126
  5. XELODA [Suspect]
     Indication: COLON CANCER
     Dosage: DOSAGE IS UNCERTAIN
     Route: 048
     Dates: start: 20100827, end: 20101029
  6. ELPLAT [Suspect]
     Route: 042
     Dates: start: 20100723, end: 20100806
  7. ELPLAT [Suspect]
     Route: 042
     Dates: start: 20101126, end: 20101126
  8. AVASTIN [Suspect]
     Route: 041
     Dates: start: 20100827, end: 20101029
  9. LEVOFOLINATE [Suspect]
     Route: 042
     Dates: start: 20101126, end: 20101126
  10. AVASTIN [Suspect]
     Indication: LARGE INTESTINE CARCINOMA
     Route: 041
     Dates: start: 20100806, end: 20101126
  11. 5-FU [Suspect]
     Route: 042
     Dates: start: 20100723, end: 20100806
  12. 5-FU [Suspect]
     Route: 042
     Dates: start: 20100723, end: 20100801
  13. 5-FU [Suspect]
     Route: 042
     Dates: start: 20101126, end: 20101126
  14. DUROTEP [Concomitant]
     Route: 062
     Dates: start: 20101122

REACTIONS (3)
  - DEPRESSED LEVEL OF CONSCIOUSNESS [None]
  - LEUKOENCEPHALOPATHY [None]
  - NEUTROPHIL COUNT DECREASED [None]
